FAERS Safety Report 8086172-9 (Version None)
Quarter: 2012Q1

REPORT INFORMATION
  Report Type: 
  Country: None (occurrence: None)
  Receive Date: 20120128
  Receipt Date: 20110426
  Transmission Date: 20120608
  Serious: No
  Sender: FDA-Public Use
  Company Number: US-ABBOTT-11P-163-0721744-00

PATIENT
  Sex: Female
  Weight: 118.04 kg

DRUGS (11)
  1. HUMIRA [Suspect]
     Indication: RHEUMATOID ARTHRITIS
     Dates: start: 20110301
  2. CELEXA [Concomitant]
     Indication: ANXIETY
  3. REQUIP [Concomitant]
     Indication: RESTLESS LEGS SYNDROME
  4. VICTOZA [Concomitant]
     Indication: DIABETES MELLITUS
  5. MOBIC [Concomitant]
     Indication: ARTHRITIS
  6. NEXIUM [Concomitant]
     Indication: HIATUS HERNIA
  7. DIOVAN [Concomitant]
     Indication: HYPERTENSION
  8. VITAMIN D [Concomitant]
     Indication: HYPOVITAMINOSIS
  9. METFFORMIN HYDROCHLORIDE [Concomitant]
     Indication: DIABETES MELLITUS
  10. TRICOR [Concomitant]
     Indication: BLOOD TRIGLYCERIDES INCREASED
  11. METHOTREXATE [Concomitant]
     Indication: RHEUMATOID ARTHRITIS

REACTIONS (3)
  - HEART RATE INCREASED [None]
  - PALPITATIONS [None]
  - DIZZINESS [None]
